FAERS Safety Report 4492779-8 (Version None)
Quarter: 2004Q4

REPORT INFORMATION
  Report Type: 
  Country: None (occurrence: None)
  Receive Date: 20041029
  Receipt Date: 20040930
  Transmission Date: 20050328
  Serious: Yes (Death)
  Sender: FDA-Public Use
  Company Number: 2004AC00435

PATIENT
  Age: 85 Year

DRUGS (1)
  1. ATENOLOL [Suspect]

REACTIONS (1)
  - OVERDOSE [None]
